FAERS Safety Report 15122950 (Version 1)
Quarter: 2018Q3

REPORT INFORMATION
  Report Type: Report from Study
  Country: US (occurrence: US)
  Receive Date: 20180709
  Receipt Date: 20180709
  Transmission Date: 20181010
  Serious: Yes (Death)
  Sender: FDA-Public Use
  Company Number: US-ACTELION-A-US2018-166649

PATIENT
  Age: 59 Year
  Sex: Male
  Weight: 136.5 kg

DRUGS (1)
  1. UPTRAVI [Suspect]
     Active Substance: SELEXIPAG
     Indication: PULMONARY ARTERIAL HYPERTENSION
     Dosage: 1600 MCG, BID
     Route: 048

REACTIONS (3)
  - Death [Fatal]
  - Feeling jittery [Unknown]
  - Presyncope [Unknown]

NARRATIVE: CASE EVENT DATE: 20180410
